FAERS Safety Report 5374715-5 (Version None)
Quarter: 2007Q2

REPORT INFORMATION
  Report Type: 
  Country: None (occurrence: None)
  Receive Date: 20070627
  Receipt Date: 20070627
  Transmission Date: 20071010
  Serious: No
  Sender: FDA-Public Use
  Company Number: None

PATIENT
  Age: 29 Year
  Sex: Female
  Weight: 68.3 kg

DRUGS (8)
  1. CHLOROPROCAINE HCL [Suspect]
     Indication: CENTRAL VENOUS CATHETERISATION
     Dates: start: 20070410
  2. ENOXAPARIN SODIUM [Concomitant]
  3. METHADONE HCL [Concomitant]
  4. DOCUSATE [Concomitant]
  5. CYPROHEPTADINE HCL [Concomitant]
  6. LORAZEPAM [Concomitant]
  7. OXYCODONE HCL [Concomitant]
  8. DIPHENHYDRAMINE HCL [Concomitant]

REACTIONS (3)
  - PRURITUS [None]
  - RESPIRATORY TRACT CONGESTION [None]
  - URTICARIA [None]
